FAERS Safety Report 18565850 (Version 1)
Quarter: 2020Q4

REPORT INFORMATION
  Report Type: Spontaneous
  Country: US (occurrence: US)
  Receive Date: 20201201
  Receipt Date: 20201201
  Transmission Date: 20210114
  Serious: Yes (Other)
  Sender: FDA-Public Use
  Company Number: US-PURDUE-USA-2020-0178851

PATIENT
  Sex: Male

DRUGS (2)
  1. LORTAB [Suspect]
     Active Substance: ACETAMINOPHEN\HYDROCODONE BITARTRATE
     Indication: SPORTS INJURY
     Dosage: UNK
     Route: 065
     Dates: start: 2000
  2. HYDROCODONE BITARTRATE AND ACETAMINOPHEN [Suspect]
     Active Substance: ACETAMINOPHEN\HYDROCODONE BITARTRATE
     Indication: PRODUCT USED FOR UNKNOWN INDICATION
     Dosage: UNK
     Route: 048

REACTIONS (9)
  - Anxiety [Unknown]
  - Drug abuse [Unknown]
  - Concussion [Unknown]
  - Fall [Unknown]
  - Bipolar disorder [Unknown]
  - Drug dependence [Unknown]
  - Toxicity to various agents [Unknown]
  - Dementia [Unknown]
  - Encephalopathy [Unknown]
